FAERS Safety Report 17042800 (Version 1)
Quarter: 2019Q4

REPORT INFORMATION
  Report Type: Spontaneous
  Country: PA (occurrence: PA)
  Receive Date: 20191118
  Receipt Date: 20191118
  Transmission Date: 20200122
  Serious: Yes (Other)
  Sender: FDA-Public Use
  Company Number: PA-PFIZER INC-2019494000

PATIENT
  Age: 25 Year
  Sex: Female

DRUGS (1)
  1. DOSTINEX [Suspect]
     Active Substance: CABERGOLINE
     Dosage: 0.5 MG, UNK
     Dates: start: 201806

REACTIONS (3)
  - Pituitary tumour benign [Unknown]
  - Weight decreased [Unknown]
  - Muscle atrophy [Unknown]
